FAERS Safety Report 7151792-2 (Version None)
Quarter: 2010Q4

REPORT INFORMATION
  Report Type: 
  Country: None (occurrence: None)
  Receive Date: 20101126
  Receipt Date: 20101115
  Transmission Date: 20110411
  Serious: Yes (Other)
  Sender: FDA-Public Use
  Company Number: 757509

PATIENT
  Age: 54 Year
  Sex: Female

DRUGS (10)
  1. AZITHROMYCIN [Suspect]
     Indication: PNEUMONIA
     Dosage: 500 MG MILLIGRAM(S), INTRAVENOUS
     Route: 042
  2. CEFTRIAXONE SODIUM [Suspect]
     Indication: PNEUMONIA
     Dosage: 1 G ON DAY 1, INTRAVENOUS; 1 G TWICE DAILY ON DAY 2 INTRAVENOUS
     Route: 042
  3. TACROLIMUS [Suspect]
     Indication: HEART TRANSPLANT
     Dosage: SEE IMAGE
     Route: 048
  4. ATORVASTATIN CALCIUM [Suspect]
  5. PREDNISONE [Concomitant]
  6. LISINOPRIL [Concomitant]
  7. CONJUGATED ESTROGENS [Concomitant]
  8. (SUMATRIPTAN) [Concomitant]
  9. SODIUM CHLORIDE [Concomitant]
  10. AZITHROMYCIN [Concomitant]

REACTIONS (16)
  - BACK PAIN [None]
  - BLOOD CREATINE INCREASED [None]
  - BLOOD UREA INCREASED [None]
  - DIARRHOEA [None]
  - DRUG INTERACTION [None]
  - DRUG LEVEL INCREASED [None]
  - DRY MOUTH [None]
  - DYSURIA [None]
  - HAEMOGLOBIN DECREASED [None]
  - HEART RATE INCREASED [None]
  - MUCOSAL DRYNESS [None]
  - NAUSEA [None]
  - NEUTROPHIL PERCENTAGE INCREASED [None]
  - PNEUMONIA [None]
  - SINUSITIS [None]
  - VOMITING [None]
